FAERS Safety Report 14424382 (Version 1)
Quarter: 2018Q1

REPORT INFORMATION
  Report Type: Spontaneous
  Country: RU (occurrence: RU)
  Receive Date: 20180123
  Receipt Date: 20180123
  Transmission Date: 20180509
  Serious: Yes (Hospitalization)
  Sender: FDA-Public Use
  Company Number: RU-ASTRAZENECA-2017SF00784

PATIENT
  Age: 62 Year
  Sex: Male
  Weight: 88 kg

DRUGS (7)
  1. OMEPRAZOLE. [Concomitant]
     Active Substance: OMEPRAZOLE
     Dates: start: 201706, end: 201712
  2. BRILINTA [Suspect]
     Active Substance: TICAGRELOR
     Indication: MYOCARDIAL INFARCTION
     Route: 048
     Dates: start: 20170102, end: 20171205
  3. ROSUVASTATIN. [Concomitant]
     Active Substance: ROSUVASTATIN
     Dates: start: 201706, end: 201712
  4. CARDIOMAGNYL [Concomitant]
     Active Substance: ASPIRIN\MAGNESIUM HYDROXIDE
     Dates: start: 201706, end: 201712
  5. PREDUCTAL  A [Concomitant]
     Dates: start: 201706, end: 201712
  6. CONCOR COR [Concomitant]
     Active Substance: BISOPROLOL FUMARATE
     Dates: start: 201706
  7. LORISTA [Concomitant]
     Active Substance: LOSARTAN POTASSIUM
     Dates: start: 201706, end: 201712

REACTIONS (3)
  - Carotid artery stenosis [Not Recovered/Not Resolved]
  - Pneumonia [Recovered/Resolved]
  - Acute leukaemia [Not Recovered/Not Resolved]

NARRATIVE: CASE EVENT DATE: 20170925
